FAERS Safety Report 6518602-5 (Version None)
Quarter: 2009Q4

REPORT INFORMATION
  Report Type: 
  Country: None (occurrence: None)
  Receive Date: 20091218
  Receipt Date: 20091202
  Transmission Date: 20100525
  Serious: Yes (Hospitalization)
  Sender: FDA-Public Use
  Company Number: 1000010368

PATIENT
  Age: 53 Year
  Sex: Female

DRUGS (4)
  1. DILTIAZEM [Suspect]
     Dosage: (30 MG)
  2. MEPHENOXALONE/PARACETAMOL (ACETAMINOPHEN) [Suspect]
     Dosage: 200 MG/450 MG
  3. AMITRIPTYLINE HCL [Suspect]
     Dosage: (25 MG)
  4. DICLOFENAC POTASSIUM [Suspect]
     Dosage: (50 MG)

REACTIONS (1)
  - ACUTE GENERALISED EXANTHEMATOUS PUSTULOSIS [None]
